FAERS Safety Report 5132316-8 (Version None)
Quarter: 2006Q4

REPORT INFORMATION
  Report Type: 
  Country: None (occurrence: None)
  Receive Date: 20061019
  Receipt Date: 20061019
  Transmission Date: 20070319
  Serious: Yes (Other)
  Sender: FDA-Public Use
  Company Number: None

PATIENT
  Sex: Female
  Weight: 78.9259 kg

DRUGS (2)
  1. ZOCOR [Suspect]
     Indication: BLOOD CHOLESTEROL
     Dosage: 20 MG 1/ DAY 40 MG
     Dates: start: 20010301, end: 20050201
  2. ZOCOR [Suspect]
     Indication: BLOOD CHOLESTEROL
     Dosage: 20 MG 1/ DAY 40 MG
     Dates: start: 20050201, end: 20060901

REACTIONS (1)
  - ILL-DEFINED DISORDER [None]
